FAERS Safety Report 4416694-0 (Version None)
Quarter: 2004Q3

REPORT INFORMATION
  Report Type: 
  Country: None (occurrence: None)
  Receive Date: 20040802
  Receipt Date: 20030719
  Transmission Date: 20050211
  Serious: Yes (Hospitalization, Other)
  Sender: FDA-Public Use
  Company Number: 207934

PATIENT
  Age: 65 Year
  Sex: Female

DRUGS (12)
  1. AVASTIN [Suspect]
     Indication: COLON CANCER METASTATIC
     Dosage: 390 MG, Q2W, INTRAVENOUS
     Route: 042
     Dates: start: 20040301, end: 20040621
  2. CAMPTOSAR [Concomitant]
  3. LEUCOVORIN CALCIUM [Concomitant]
  4. FLUOROURACIL [Concomitant]
  5. OXYCONTIN [Concomitant]
  6. MVI (MULTIVITAMINS NOS) [Concomitant]
  7. CALCIUM (CALCIUM NOS) [Concomitant]
  8. SENOKOT [Concomitant]
  9. IMODIUM [Concomitant]
  10. ZYRTEC [Concomitant]
  11. ROBITUSSIN (GUAIFENESIN) [Concomitant]
  12. FLONASE NASAL SPRAY (FLUTICASONE PROPIONATE) [Concomitant]

REACTIONS (3)
  - DEEP VEIN THROMBOSIS [None]
  - PULMONARY ARTERY THROMBOSIS [None]
  - PULMONARY EMBOLISM [None]
